FAERS Safety Report 7444816-6 (Version None)
Quarter: 2011Q2

REPORT INFORMATION
  Report Type: 
  Country: None (occurrence: None)
  Receive Date: 20110426
  Receipt Date: 20110426
  Transmission Date: 20111010
  Serious: Yes (Hospitalization)
  Sender: FDA-Public Use
  Company Number: None

PATIENT
  Age: 64 Year
  Sex: Male

DRUGS (4)
  1. TOPROL-XL [Concomitant]
  2. LASIX [Concomitant]
  3. IBUPROFEN [Suspect]
     Indication: BACK PAIN
     Dosage: 800 MG TID PO
     Route: 048
  4. COLACE [Concomitant]

REACTIONS (2)
  - GASTRITIS [None]
  - HAEMATOCHEZIA [None]
